FAERS Safety Report 4690065-4 (Version None)
Quarter: 2005Q2

REPORT INFORMATION
  Report Type: 
  Country: None (occurrence: None)
  Receive Date: 20050614
  Receipt Date: 20050603
  Transmission Date: 20051028
  Serious: Yes (Hospitalization)
  Sender: FDA-Public Use
  Company Number: NALX20050001

PATIENT

DRUGS (1)
  1. NALOXONE [Suspect]
     Indication: OVERDOSE
     Dosage: 0.4 MG PRN IM/IV

REACTIONS (3)
  - CONFUSIONAL STATE [None]
  - HEADACHE [None]
  - VISUAL DISTURBANCE [None]
